FAERS Safety Report 5907975-X (Version None)
Quarter: 2008Q4

REPORT INFORMATION
  Report Type: 
  Country: None (occurrence: None)
  Receive Date: 20081003
  Receipt Date: 20080922
  Transmission Date: 20090506
  Serious: Yes (Death, Life-Threatening, Hospitalization, Other)
  Sender: FDA-Public Use
  Company Number: DE-PFIZER INC-2008073877

PATIENT
  Sex: Female

DRUGS (11)
  1. SUTENT [Suspect]
     Indication: METASTATIC RENAL CELL CARCINOMA
     Route: 048
     Dates: start: 20080501
  2. PAMIDRONATE DISODIUM [Concomitant]
  3. CALCIUM WITH VITAMIN D [Concomitant]
  4. ONDANSETRON [Concomitant]
  5. MOVICOL [Concomitant]
  6. DURAGESIC-100 [Concomitant]
  7. NITRENDIPINE [Concomitant]
  8. NEPRESOL [Concomitant]
  9. FUROSEMIDE [Concomitant]
  10. ALL OTHER THERAPEUTIC PRODUCTS [Concomitant]
  11. CLEXANE [Concomitant]

REACTIONS (8)
  - ANAEMIA [None]
  - IMPAIRED HEALING [None]
  - NEUROPATHY PERIPHERAL [None]
  - POST PROCEDURAL HAEMORRHAGE [None]
  - PROTHROMBIN TIME SHORTENED [None]
  - RESUSCITATION [None]
  - SHOCK HAEMORRHAGIC [None]
  - WEIGHT DECREASED [None]
